FAERS Safety Report 4838952-8 (Version None)
Quarter: 2005Q4

REPORT INFORMATION
  Report Type: 
  Country: None (occurrence: None)
  Receive Date: 20051024
  Receipt Date: 20050909
  Transmission Date: 20060501
  Serious: Yes (Other)
  Sender: FDA-Public Use
  Company Number: 213739

PATIENT
  Age: 54 Year
  Sex: Female
  Weight: 76.6 kg

DRUGS (10)
  1. XOLAIR [Suspect]
     Indication: ASTHMA
     Dosage: 150 MG,1/MONTH
     Dates: start: 20040714, end: 20050408
  2. NEBULIZER (UNK INGREDIENTS) (RESPIRATORY TREATMENTS AND DEVICES) [Concomitant]
  3. MIRAPEX [Concomitant]
  4. DIOVAN HCT [Concomitant]
  5. SINGULAIR [Concomitant]
  6. NORVASC [Concomitant]
  7. ALBUTEROL INHALER (ALBUTEROL SULFATE, ALBUTEROL) [Concomitant]
  8. LEVOXYL [Concomitant]
  9. PULMICORT [Concomitant]
  10. IPRATROPIUM (IPRATROPIUM BROMIDE) [Concomitant]

REACTIONS (1)
  - ANAPHYLACTIC REACTION [None]
